FAERS Safety Report 9733505 (Version 2)
Quarter: 2014Q1

REPORT INFORMATION
  Report Type: Spontaneous
  Country: FR (occurrence: FR)
  Receive Date: 20131205
  Receipt Date: 20140106
  Transmission Date: 20141002
  Serious: Yes (Death)
  Sender: FDA-Public Use
  Company Number: FR-B.I. PHARMACEUTICALS,INC./RIDGEFIELD-2013-BI-40552FF

PATIENT
  Age: 86 Year
  Sex: Male
  Weight: 56.2 kg

DRUGS (9)
  1. PRADAXA [Suspect]
     Indication: ATRIAL FIBRILLATION
     Dosage: 220 MG
     Route: 048
     Dates: start: 201211
  2. AMIODARONE [Concomitant]
     Route: 048
  3. COVERSYL 5 MG [Concomitant]
     Route: 048
     Dates: start: 2011
  4. CRESTOR 5 MG [Concomitant]
     Route: 048
     Dates: start: 2011
  5. AMOXICILLINE 1 G [Concomitant]
     Dosage: 12 G
     Route: 042
  6. GENTAMICINE 80 MG [Concomitant]
     Dosage: 200 MG
     Route: 042
     Dates: start: 20131109
  7. LAROXYL [Concomitant]
  8. SERESTA [Concomitant]
  9. SINGULAIR [Concomitant]

REACTIONS (2)
  - Cardio-respiratory arrest [Fatal]
  - Melaena [Fatal]
